FAERS Safety Report 9890367 (Version 2)
Quarter: 2014Q1

REPORT INFORMATION
  Report Type: Report from Study
  Country: US (occurrence: US)
  Receive Date: 20140212
  Receipt Date: 20140307
  Transmission Date: 20141002
  Serious: Yes (Hospitalization, Other)
  Sender: FDA-Public Use
  Company Number: US-ROCHE-1348264

PATIENT
  Age: 13 Year
  Sex: Male
  Weight: 42 kg

DRUGS (15)
  1. NUTROPIN AQ [Suspect]
     Indication: RENAL FAILURE CHRONIC
     Route: 058
  2. CELLCEPT [Suspect]
     Indication: PRODUCT USED FOR UNKNOWN INDICATION
     Dosage: 200 MG/ML
     Route: 048
  3. CALCITRIOL [Concomitant]
     Route: 065
  4. RAPAMUNE [Concomitant]
     Route: 065
  5. PREDNISONE [Concomitant]
     Route: 048
  6. AMLODIPINE BESYLATE [Concomitant]
     Route: 065
  7. LABETALOL HCL [Concomitant]
     Route: 065
  8. SODIUM BICARBONATE [Concomitant]
     Route: 054
  9. POLYSACCHARIDE-IRON [Concomitant]
     Route: 065
  10. NITROFURANTOIN MACROCRYSTALS [Concomitant]
     Route: 065
  11. RENVELA [Concomitant]
     Route: 048
  12. OMEPRAZOLE [Concomitant]
     Route: 065
  13. VENTOLIN HFA [Concomitant]
     Indication: WHEEZING
     Route: 065
  14. VENTOLIN HFA [Concomitant]
     Indication: COUGH
  15. MIRALAX [Concomitant]
     Dosage: 1 CAPFUL IN A GLASS OF WATER
     Route: 065

REACTIONS (9)
  - Pneumonia [Recovered/Resolved]
  - Renal transplant [Unknown]
  - Renal tubular acidosis [Unknown]
  - Detrusor sphincter dyssynergia [Unknown]
  - Acidosis [Unknown]
  - Hypertension [Unknown]
  - Otitis media [Unknown]
  - Anaemia [Unknown]
  - Failure to thrive [Unknown]
